FAERS Safety Report 4322661-8 (Version None)
Quarter: 2004Q1

REPORT INFORMATION
  Report Type: 
  Country: None (occurrence: None)
  Receive Date: 20040324
  Receipt Date: 20040120
  Transmission Date: 20041129
  Serious: Yes (Other)
  Sender: FDA-Public Use
  Company Number: US-BRISTOL-MYERS SQUIBB COMPANY-12481586

PATIENT
  Age: 41 Year
  Sex: Male
  Weight: 86 kg

DRUGS (7)
  1. REYATAZ [Suspect]
     Indication: HIV INFECTION
     Route: 048
     Dates: start: 20030601, end: 20040112
  2. SUSTIVA [Suspect]
     Dates: start: 20030601
  3. EPIVIR [Suspect]
     Dates: start: 20030101
  4. VIREAD [Suspect]
  5. AMBIEN [Concomitant]
     Dates: start: 20030101
  6. DILAUDID [Concomitant]
     Dates: start: 20030901
  7. KEFLEX [Concomitant]
     Dates: start: 20040112

REACTIONS (4)
  - AGITATION [None]
  - ANGER [None]
  - CONFUSIONAL STATE [None]
  - PANCREATITIS [None]
